FAERS Safety Report 8841420 (Version 4)
Quarter: 2013Q4

REPORT INFORMATION
  Report Type: Spontaneous
  Country: US (occurrence: US)
  Receive Date: 20121015
  Receipt Date: 20131101
  Transmission Date: 20140711
  Serious: No
  Sender: FDA-Public Use
  Company Number: US-009507513-1209USA009749

PATIENT
  Age: 25 Year
  Sex: Female
  Weight: 61.45 kg

DRUGS (1)
  1. IMPLANON [Suspect]
     Indication: CONTRACEPTION
     Dosage: 1 DF, EVERY 3 YEARS
     Route: 059
     Dates: start: 20120919, end: 20120919

REACTIONS (5)
  - Device difficult to use [Unknown]
  - Medical device complication [Recovered/Resolved]
  - Medical device complication [Unknown]
  - Product quality issue [Unknown]
  - No adverse event [Recovered/Resolved]
